FAERS Safety Report 8966018 (Version 1)
Quarter: 2012Q4

REPORT INFORMATION
  Report Type: 
  Country: CA (occurrence: CA)
  Receive Date: 20121214
  Receipt Date: 20121214
  Transmission Date: 20130627
  Serious: Yes (Other)
  Sender: FDA-Public Use
  Company Number: CHPA2012CA024046

PATIENT
  Sex: Female

DRUGS (1)
  1. HABITROL [Suspect]
     Indication: SMOKING CESSATION THERAPY
     Dosage: Unk, Unk
     Route: 062
     Dates: start: 2012, end: 20121119

REACTIONS (2)
  - Swollen tongue [Unknown]
  - Hypoaesthesia [Unknown]
